FAERS Safety Report 7436658-2 (Version None)
Quarter: 2011Q2

REPORT INFORMATION
  Report Type: 
  Country: None (occurrence: None)
  Receive Date: 20110426
  Receipt Date: 20110417
  Transmission Date: 20111010
  Serious: Yes (Hospitalization)
  Sender: FDA-Public Use
  Company Number: US-JNJFOC-20110408638

PATIENT
  Age: 70 Year
  Sex: Female

DRUGS (5)
  1. TYLENOL-500 [Suspect]
     Indication: ARTHRALGIA
     Dosage: 2600MG-3900MG
     Route: 065
  2. PREDNISONE [Concomitant]
  3. OXYCODONE [Concomitant]
  4. TYLENOL-500 [Suspect]
     Route: 065
  5. LAXATIVE [Concomitant]

REACTIONS (8)
  - BLOOD SODIUM DECREASED [None]
  - DYSPNOEA [None]
  - HEADACHE [None]
  - OEDEMA PERIPHERAL [None]
  - CONSTIPATION [None]
  - SINUSITIS [None]
  - BLOOD POTASSIUM INCREASED [None]
  - WEIGHT DECREASED [None]
